FAERS Safety Report 10497862 (Version 5)
Quarter: 2014Q4

REPORT INFORMATION
  Report Type: Report from Study
  Country: PL (occurrence: PL)
  Receive Date: 20141006
  Receipt Date: 20141024
  Transmission Date: 20150528
  Serious: Yes (Death)
  Sender: FDA-Public Use
  Company Number: PL-ROCHE-1440652

PATIENT
  Age: 66 Year
  Sex: Female
  Weight: 76 kg

DRUGS (32)
  1. TOCILIZUMAB [Suspect]
     Active Substance: TOCILIZUMAB
     Dosage: UNIT DOSE: 29.6 ML/KG
     Route: 042
     Dates: start: 20140506
  2. BIOSOTAL [Concomitant]
     Dosage: 2 X 1 TAB
     Route: 065
  3. ORATRAM [Concomitant]
     Dosage: ORATRAM 100
     Route: 065
  4. TOCILIZUMAB [Suspect]
     Active Substance: TOCILIZUMAB
     Indication: RHEUMATOID ARTHRITIS
     Route: 042
     Dates: start: 20130115
  5. DICLOFENAC [Concomitant]
     Active Substance: DICLOFENAC
     Indication: RHEUMATOID ARTHRITIS
     Route: 048
     Dates: start: 20100904
  6. MIDAZOLAM [Concomitant]
     Active Substance: MIDAZOLAM\MIDAZOLAM HYDROCHLORIDE
     Route: 042
  7. CONTROLOC [Concomitant]
     Active Substance: PANTOPRAZOLE SODIUM
  8. HEPAREGEN [Concomitant]
  9. THIOCODIN (POLAND) [Concomitant]
  10. TOCILIZUMAB [Suspect]
     Active Substance: TOCILIZUMAB
     Dosage: UNIT DOSE: 30.4 ML/KG
     Route: 042
     Dates: start: 20140603
  11. OMEPRAZOLUM [Concomitant]
     Indication: GASTRITIS PROPHYLAXIS
     Route: 048
     Dates: start: 20100903
  12. CYCLONAMINE [Concomitant]
     Active Substance: ETHAMSYLATE
  13. METOCLOPRAMIDUM [Concomitant]
  14. KETOPROFEN. [Concomitant]
     Active Substance: KETOPROFEN
  15. NATRIUM CHLORATUM 0.9% [Concomitant]
  16. ZOFRAN [Concomitant]
     Active Substance: ONDANSETRON HYDROCHLORIDE
  17. TOCILIZUMAB [Suspect]
     Active Substance: TOCILIZUMAB
     Dosage: LAST DOSE PRIOR TO SAE; 01/JUL/2014.?UNIT DOSE: 30.4 ML/KG
     Route: 042
     Dates: start: 20140701, end: 20140717
  18. METYPRED [Concomitant]
     Active Substance: METHYLPREDNISOLONE
     Indication: RHEUMATOID ARTHRITIS
     Route: 048
     Dates: start: 20100903
  19. FUROSEMIDE. [Concomitant]
     Active Substance: FUROSEMIDE
  20. PARACETAMOL [Concomitant]
     Active Substance: ACETAMINOPHEN
  21. SPIRONOL [Concomitant]
     Active Substance: SPIRONOLACTONE
  22. ATROVENT [Concomitant]
     Active Substance: IPRATROPIUM BROMIDE
  23. TOCILIZUMAB [Suspect]
     Active Substance: TOCILIZUMAB
     Dosage: UNIT DOSE: 29.6 ML/KG
     Route: 042
     Dates: start: 20140408
  24. ACIDUM FOLICUM [Concomitant]
     Active Substance: FOLIC ACID
     Indication: RHEUMATOID ARTHRITIS
     Dosage: TOTAL DAILY DOSE: 15 MG/ WEEKLY
     Route: 048
     Dates: start: 20121106
  25. DEXAVEN [Concomitant]
     Active Substance: DEXAMETHASONE
  26. KETONAL (POLAND) [Concomitant]
  27. ACODIN [Concomitant]
  28. GLYCERIN SUPPOSITORIES [Concomitant]
  29. METHOTREXATE [Suspect]
     Active Substance: METHOTREXATE
     Indication: RHEUMATOID ARTHRITIS
     Dosage: TOTAL DAILTY DOSE: 20MG/WEEKLY
     Route: 048
     Dates: start: 20110107
  30. VITACON [Concomitant]
  31. METOCLOPRAMIDE. [Concomitant]
     Active Substance: METOCLOPRAMIDE
  32. CONTROLOC [Concomitant]
     Active Substance: PANTOPRAZOLE SODIUM

REACTIONS (2)
  - Hepatic enzyme increased [Recovered/Resolved]
  - Small cell lung cancer metastatic [Fatal]

NARRATIVE: CASE EVENT DATE: 20140709
